FAERS Safety Report 7495507-7 (Version None)
Quarter: 2011Q2

REPORT INFORMATION
  Report Type: 
  Country: None (occurrence: None)
  Receive Date: 20110523
  Receipt Date: 20110510
  Transmission Date: 20111010
  Serious: Yes (Other)
  Sender: FDA-Public Use
  Company Number: ES-RANBAXY-2011RR-44507

PATIENT
  Age: 78 Year
  Sex: Female

DRUGS (6)
  1. AMOXICILLIN AND CLAVULANATE POTASSIUM [Suspect]
     Indication: BRONCHITIS
     Dosage: 875 MG, TID
     Route: 048
     Dates: start: 20110116, end: 20110121
  2. METHYLPREDNISOLONE [Concomitant]
     Dosage: UNK
     Dates: start: 20110121
  3. IPRATROPIUM BROMIDE [Concomitant]
     Dosage: UNK
     Dates: start: 20110121
  4. ENOXAPARIN [Concomitant]
     Dosage: UNK
     Dates: start: 20110121
  5. ALBUTEROL [Concomitant]
     Dosage: UNK
     Dates: start: 20110121
  6. LEVOFLOXACIN [Suspect]
     Indication: BRONCHITIS
     Dosage: 500 MG, UNK
     Route: 048
     Dates: start: 20110121, end: 20110124

REACTIONS (1)
  - HEPATITIS ACUTE [None]
